FAERS Safety Report 5848376-2 (Version None)
Quarter: 2008Q3

REPORT INFORMATION
  Report Type: 
  Country: None (occurrence: None)
  Receive Date: 20080818
  Receipt Date: 20080813
  Transmission Date: 20090109
  Serious: Yes (Death)
  Sender: FDA-Public Use
  Company Number: US-CELGENEUS-163-20785-08071145

PATIENT
  Sex: Male

DRUGS (4)
  1. THALOMID [Suspect]
     Indication: METASTASIS
     Route: 048
     Dates: start: 20080111
  2. THALOMID [Suspect]
     Route: 048
     Dates: start: 20071019, end: 20080201
  3. THALOMID [Suspect]
     Dosage: 100-200-400 MG
     Route: 048
     Dates: start: 20060131, end: 20071001
  4. THALOMID [Suspect]
     Route: 048
     Dates: start: 20080506

REACTIONS (1)
  - MULTIPLE MYELOMA [None]
